FAERS Safety Report 20931472 (Version 2)
Quarter: 2022Q2

REPORT INFORMATION
  Report Type: Spontaneous
  Country: US (occurrence: US)
  Receive Date: 20220608
  Receipt Date: 20220629
  Transmission Date: 20220720
  Serious: Yes (Other)
  Sender: FDA-Public Use
  Company Number: US-BRISTOL-MYERS SQUIBB COMPANY-2022-040025

PATIENT
  Age: 76 Year
  Sex: Male

DRUGS (2)
  1. POMALYST [Suspect]
     Active Substance: POMALIDOMIDE
     Indication: Plasma cell myeloma
     Dosage: TAKE 1 CAPSULE (3MG) BY MOUTH AT BEDTIME DAYS 1-21 WITH 7 OFF
     Route: 048
     Dates: start: 20191230
  2. POMALYST [Suspect]
     Active Substance: POMALIDOMIDE
     Dosage: TAKE 1 CAPSULE (3MG) BY MOUTH AT BEDTIME DAYS 1-21 WITH 7 OFF
     Route: 048
     Dates: start: 20220511

REACTIONS (2)
  - Intervertebral disc degeneration [Unknown]
  - Feeling abnormal [Recovered/Resolved]
